FAERS Safety Report 26041313 (Version 1)
Quarter: 2025Q4

REPORT INFORMATION
  Report Type: Spontaneous
  Country: US (occurrence: US)
  Receive Date: 20251113
  Receipt Date: 20251113
  Transmission Date: 20260119
  Serious: No
  Sender: BAYER HEALTHCARE PHARMACEUTICALS INC.
  Company Number: US-BAYER-2025A150004

PATIENT
  Age: 27 Year
  Sex: Male

DRUGS (1)
  1. KOVALTRY [Suspect]
     Active Substance: ANTIHEMOPHILIC FACTOR, HUMAN RECOMBINANT
     Indication: Prophylaxis
     Dosage: 4000 U, KOVALTRY 750/3164 IU: INFUSE~4000 UNITS
     Route: 042

REACTIONS (4)
  - Accident at work [None]
  - Joint swelling [None]
  - Contusion [None]
  - Joint injury [None]

NARRATIVE: CASE EVENT DATE: 20250201
